FAERS Safety Report 19648170 (Version 1)
Quarter: 2021Q3

REPORT INFORMATION
  Report Type: Other
  Country: AR (occurrence: AR)
  Receive Date: 20210803
  Receipt Date: 20210803
  Transmission Date: 20211014
  Serious: Yes (Disabling, Other)
  Sender: FDA-Public Use
  Company Number: AR-ROCHE-1585485

PATIENT
  Sex: Male

DRUGS (5)
  1. PARACETAMOL [Concomitant]
     Active Substance: ACETAMINOPHEN
     Dates: start: 20130419
  2. XOLAIR [Suspect]
     Active Substance: OMALIZUMAB
     Indication: ASTHMA
  3. PHENYLEPHRINE HYDROCHLORIDE. [Concomitant]
     Active Substance: PHENYLEPHRINE HYDROCHLORIDE
     Dates: start: 20130419
  4. XOLAIR [Suspect]
     Active Substance: OMALIZUMAB
     Indication: CHRONIC OBSTRUCTIVE PULMONARY DISEASE
     Route: 058
     Dates: start: 201303
  5. CHLORPHENAMINE MALEATE [Concomitant]
     Active Substance: CHLORPHENIRAMINE MALEATE
     Dates: start: 20130419

REACTIONS (10)
  - Areflexia [Unknown]
  - Asthma [Unknown]
  - Tremor [Recovered/Resolved]
  - Blood glucose increased [Unknown]
  - Respiratory disorder [Recovered/Resolved]
  - Pain [Unknown]
  - Off label use [Unknown]
  - Thrombosis [Not Recovered/Not Resolved]
  - Asthmatic crisis [Unknown]
  - Fall [Unknown]
